FAERS Safety Report 6324405-7 (Version None)
Quarter: 2009Q3

REPORT INFORMATION
  Report Type: 
  Country: None (occurrence: None)
  Receive Date: 20090824
  Receipt Date: 20090429
  Transmission Date: 20100115
  Serious: No
  Sender: FDA-Public Use
  Company Number: US-ABBOTT-09P-163-0570614-00

PATIENT
  Sex: Female
  Weight: 77.18 kg

DRUGS (4)
  1. NIASPAN [Suspect]
     Indication: BLOOD CHOLESTEROL
     Dates: start: 20090427
  2. CARVEDILOL [Concomitant]
     Indication: BLOOD PRESSURE
     Route: 048
  3. VIT D [Concomitant]
     Indication: DRUG USE FOR UNKNOWN INDICATION
  4. BONE GUARD FORTE [Concomitant]
     Indication: DRUG USE FOR UNKNOWN INDICATION

REACTIONS (1)
  - PARAESTHESIA [None]
